FAERS Safety Report 4681163-X (Version None)
Quarter: 2005Q2

REPORT INFORMATION
  Report Type: 
  Country: None (occurrence: None)
  Receive Date: 20050602
  Receipt Date: 20050602
  Transmission Date: 20051028
  Serious: Yes (Life-Threatening)
  Sender: FDA-Public Use
  Company Number: None

PATIENT
  Sex: Male
  Weight: 91.173 kg

DRUGS (3)
  1. BENAZEPRIL HCL [Suspect]
     Indication: ANGINA PECTORIS
     Dosage: 10 MG   1 DAILY
  2. BENAZEPRIL HCL [Suspect]
     Indication: ARTERIAL BYPASS OPERATION
     Dosage: 10 MG   1 DAILY
  3. BENAZEPRIL HCL [Suspect]
     Indication: HYPERTENSION
     Dosage: 10 MG   1 DAILY

REACTIONS (5)
  - CHEST DISCOMFORT [None]
  - FATIGUE [None]
  - HYPERTENSION [None]
  - STOMACH DISCOMFORT [None]
  - THERAPEUTIC RESPONSE UNEXPECTED WITH DRUG SUBSTITUTION [None]
